FAERS Safety Report 16159423 (Version 1)
Quarter: 2019Q2

REPORT INFORMATION
  Report Type: Spontaneous
  Country: US (occurrence: US)
  Receive Date: 20190404
  Receipt Date: 20190404
  Transmission Date: 20190711
  Serious: Yes (Other)
  Sender: FDA-Public Use
  Company Number: US-TEVA-2019-US-1031407

PATIENT
  Sex: Female

DRUGS (2)
  1. METRONIDAZOLE TABLETS [Suspect]
     Active Substance: METRONIDAZOLE
     Indication: DIVERTICULITIS
     Dates: start: 20190316, end: 20190320
  2. AUGMENTIN [Suspect]
     Active Substance: AMOXICILLIN\CLAVULANATE POTASSIUM
     Route: 065

REACTIONS (8)
  - Hypoaesthesia [Unknown]
  - Product use in unapproved indication [Unknown]
  - Burning sensation [Recovered/Resolved]
  - Drug hypersensitivity [Unknown]
  - Dizziness [Recovering/Resolving]
  - Peripheral coldness [Not Recovered/Not Resolved]
  - Neuropathy peripheral [Unknown]
  - Paraesthesia [Not Recovered/Not Resolved]

NARRATIVE: CASE EVENT DATE: 20190316
